FAERS Safety Report 5121952-0 (Version None)
Quarter: 2006Q4

REPORT INFORMATION
  Report Type: 
  Country: None (occurrence: None)
  Receive Date: 20061003
  Receipt Date: 20060918
  Transmission Date: 20070319
  Serious: No
  Sender: FDA-Public Use
  Company Number: E3810-00292-SPO-ES

PATIENT
  Age: 83 Year
  Sex: Male

DRUGS (4)
  1. RABEPRAZOLE SODIUM [Suspect]
     Indication: GASTROINTESTINAL DISORDER
     Dosage: ORAL
     Route: 048
  2. RABEPRAZOLE SODIUM [Suspect]
     Indication: PROPHYLAXIS
     Dosage: ORAL
     Route: 048
  3. ACENOCOUMAROL/SINTROM (ACENOCOUMAROL) [Concomitant]
  4. ANTIACIDS (ANTIACID) [Concomitant]

REACTIONS (2)
  - COAGULATION TEST ABNORMAL [None]
  - OFF LABEL USE [None]
